FAERS Safety Report 6244928-9 (Version None)
Quarter: 2009Q2

REPORT INFORMATION
  Report Type: 
  Country: None (occurrence: None)
  Receive Date: 20090625
  Receipt Date: 20090612
  Transmission Date: 20091009
  Serious: Yes (Hospitalization)
  Sender: FDA-Public Use
  Company Number: PHHY2009MX23602

PATIENT
  Sex: Female

DRUGS (6)
  1. DIOVAN HCT [Suspect]
     Indication: HYPERTENSION
     Dosage: 1 TABLET PER DAY
     Route: 048
     Dates: start: 20040301
  2. CARBAMAZEPINE [Concomitant]
     Dosage: 1 TABLET PER DAY
  3. ACENOCOUMAROL [Concomitant]
     Indication: ANTICOAGULANT THERAPY
     Dosage: UNK
  4. INSULIN [Concomitant]
     Indication: DIABETES MELLITUS
  5. DIGOXIN [Concomitant]
     Dosage: 1 TABLET PER DAY
  6. ALDOMET [Concomitant]
     Dosage: UNK

REACTIONS (2)
  - JOINT INJURY [None]
  - WOUND TREATMENT [None]
